FAERS Safety Report 23520421 (Version 1)
Quarter: 2024Q1

REPORT INFORMATION
  Report Type: Spontaneous
  Country: IT (occurrence: IT)
  Receive Date: 20240214
  Receipt Date: 20240214
  Transmission Date: 20240410
  Serious: Yes (Other)
  Sender: FDA-Public Use
  Company Number: IT-BRISTOL-MYERS SQUIBB COMPANY-2024-010469

PATIENT
  Age: 72 Year
  Sex: Male

DRUGS (5)
  1. APIXABAN [Suspect]
     Active Substance: APIXABAN
     Indication: Product used for unknown indication
     Dosage: UNK
     Route: 048
  2. OZURDEX [Suspect]
     Active Substance: DEXAMETHASONE
     Indication: Macular oedema
     Dosage: 0.7 MILLIGRAM
     Route: 065
     Dates: start: 201603
  3. OZURDEX [Suspect]
     Active Substance: DEXAMETHASONE
     Indication: Retinal vein occlusion
     Dosage: 0.7 MILLIGRAM
     Route: 065
     Dates: start: 201704
  4. OZURDEX [Suspect]
     Active Substance: DEXAMETHASONE
     Dosage: 0.7 MILLIGRAM
     Dates: start: 2022
  5. OFTASTERIL [Concomitant]
     Indication: Product used for unknown indication
     Dosage: 5 PERCENT
     Route: 065

REACTIONS (1)
  - Hyphaema [Recovered/Resolved]
